FAERS Safety Report 16248156 (Version 5)
Quarter: 2019Q2

REPORT INFORMATION
  Report Type: Report from Study
  Country: BR (occurrence: BR)
  Receive Date: 20190428
  Receipt Date: 20190616
  Transmission Date: 20190711
  Serious: Yes (Hospitalization)
  Sender: FDA-Public Use
  Company Number: BR-BIOGEN-2019BI00729093

PATIENT
  Age: 2 Year
  Sex: Female
  Weight: 8.8 kg

DRUGS (5)
  1. ALLEGRA [Concomitant]
     Active Substance: FEXOFENADINE HYDROCHLORIDE
     Indication: PRODUCT USED FOR UNKNOWN INDICATION
     Route: 065
  2. CLENIL A [Concomitant]
     Active Substance: BECLOMETHASONE DIPROPIONATE
     Indication: PRODUCT USED FOR UNKNOWN INDICATION
     Route: 065
  3. SPINRAZA [Suspect]
     Active Substance: NUSINERSEN
     Indication: SPINAL MUSCULAR ATROPHY
     Route: 037
     Dates: start: 2018
  4. ASTRO [Concomitant]
     Indication: PRODUCT USED FOR UNKNOWN INDICATION
     Route: 065
  5. ACEBROFILINA [Concomitant]
     Active Substance: AMBROXOL ACEFYLLINATE
     Indication: PRODUCT USED FOR UNKNOWN INDICATION
     Route: 065

REACTIONS (13)
  - Hypertension [Unknown]
  - Cardio-respiratory arrest [Recovered/Resolved]
  - Heart rate decreased [Recovered/Resolved]
  - Vomiting [Unknown]
  - Pneumonia [Unknown]
  - Increased bronchial secretion [Recovered/Resolved]
  - Oxygen saturation decreased [Not Recovered/Not Resolved]
  - Weight decreased [Recovered/Resolved]
  - Gastrin secretion disorder [Unknown]
  - Snoring [Recovered/Resolved]
  - Pain [Unknown]
  - Enzyme abnormality [Recovered/Resolved]
  - Cardiac arrest [Recovered/Resolved]

NARRATIVE: CASE EVENT DATE: 201903
